FAERS Safety Report 19290725 (Version 1)
Quarter: 2021Q2

REPORT INFORMATION
  Report Type: Spontaneous
  Country: CA (occurrence: CA)
  Receive Date: 20210521
  Receipt Date: 20210521
  Transmission Date: 20210717
  Serious: Yes (Death)
  Sender: FDA-Public Use
  Company Number: CA-ROCHE-2833607

PATIENT
  Age: 73 Year
  Sex: Male

DRUGS (7)
  1. MEPERIDINE [Concomitant]
     Active Substance: MEPERIDINE
  2. RITUXAN [Suspect]
     Active Substance: RITUXIMAB
     Indication: PRODUCT USED FOR UNKNOWN INDICATION
     Route: 041
  3. ACETAMINOPHEN. [Concomitant]
     Active Substance: ACETAMINOPHEN
  4. RASBURICASE [Concomitant]
     Active Substance: RASBURICASE
  5. DIPHENHYDRAMINE. [Concomitant]
     Active Substance: DIPHENHYDRAMINE
  6. CETIRIZINE [Concomitant]
     Active Substance: CETIRIZINE HYDROCHLORIDE
  7. RANITIDINE. [Concomitant]
     Active Substance: RANITIDINE

REACTIONS (6)
  - Chills [Fatal]
  - General physical health deterioration [Fatal]
  - Hypotension [Fatal]
  - Infusion related reaction [Fatal]
  - Back pain [Fatal]
  - Hypoxia [Fatal]
